FAERS Safety Report 6955843-7 (Version None)
Quarter: 2010Q3

REPORT INFORMATION
  Report Type: 
  Country: None (occurrence: None)
  Receive Date: 20100830
  Receipt Date: 20100817
  Transmission Date: 20110219
  Serious: Yes (Hospitalization, Disabling)
  Sender: FDA-Public Use
  Company Number: US-ROCHE-722703

PATIENT
  Age: 73 Year
  Sex: Female

DRUGS (15)
  1. NAPROXEN [Suspect]
     Indication: ARTHRITIS
     Route: 065
     Dates: end: 20070101
  2. NAPROXEN [Suspect]
     Route: 065
     Dates: start: 20100101
  3. CELEBREX [Suspect]
     Indication: ARTHRITIS
     Route: 065
     Dates: start: 20100101
  4. CLIMARA [Suspect]
     Dosage: START DATE WAS REPORTED AS NOV OR DEC 2009.
     Route: 065
     Dates: start: 20091101
  5. ALTOPREV [Suspect]
     Indication: PRODUCT USED FOR UNKNOWN INDICATION
     Route: 065
     Dates: end: 20070101
  6. PREMPRO [Concomitant]
  7. HYDROCHLOROTHIAZIDE [Concomitant]
  8. HYZAAR [Concomitant]
  9. ASPIRIN [Concomitant]
  10. RESTORIL [Concomitant]
     Indication: SLEEP DISORDER
  11. FENTANYL CITRATE [Concomitant]
     Route: 062
  12. ACIPHEX [Concomitant]
  13. BUPROPION [Concomitant]
  14. VITAMIN TAB [Concomitant]
  15. TRICOR [Suspect]
     Indication: PRODUCT USED FOR UNKNOWN INDICATION
     Route: 065
     Dates: end: 20070101

REACTIONS (4)
  - ALOPECIA [None]
  - MUSCULOSKELETAL DISCOMFORT [None]
  - PAIN [None]
  - PARALYSIS [None]
